FAERS Safety Report 8675515 (Version 2)
Quarter: 2013Q2

REPORT INFORMATION
  Report Type: Spontaneous
  Country: US (occurrence: US)
  Receive Date: 20120720
  Receipt Date: 20130523
  Transmission Date: 20140414
  Serious: No
  Sender: FDA-Public Use
  Company Number: US-009507513-1207USA002247

PATIENT
  Sex: Female

DRUGS (11)
  1. SINGULAIR [Suspect]
     Indication: ASTHMA
     Dosage: 10 MG, QD
     Route: 048
     Dates: start: 2000, end: 2011
  2. ZANTAC [Concomitant]
  3. LEXAPRO [Concomitant]
  4. HALDOL [Concomitant]
  5. SEROQUEL [Concomitant]
  6. ATARAX (ALPRAZOLAM) [Concomitant]
  7. BENADRYL [Concomitant]
  8. EPIPEN [Concomitant]
  9. FLOVENT [Concomitant]
  10. ALBUTEROL [Concomitant]
  11. ALLEGRA [Concomitant]
     Indication: ASTHMA

REACTIONS (1)
  - Urticaria [Not Recovered/Not Resolved]
